FAERS Safety Report 9792645 (Version 1)
Quarter: 2014Q1

REPORT INFORMATION
  Report Type: Spontaneous
  Country: US (occurrence: US)
  Receive Date: 20140102
  Receipt Date: 20140102
  Transmission Date: 20141002
  Serious: No
  Sender: FDA-Public Use
  Company Number: US-SA-2013SA107940

PATIENT
  Age: 51 Year
  Sex: Male

DRUGS (14)
  1. AUBAGIO [Suspect]
     Indication: MULTIPLE SCLEROSIS
     Route: 048
     Dates: start: 20130917
  2. CLONIDINE [Concomitant]
  3. BUSPIRONE [Concomitant]
  4. CYMBALTA [Concomitant]
  5. DIAZEPAM [Concomitant]
  6. LOTREL [Concomitant]
  7. DEXTROAMPHETAMINE SULFATE [Concomitant]
  8. HYDROCODONE [Concomitant]
  9. METFORMIN HYDROCHLORIDE [Concomitant]
  10. METOPROLOL [Concomitant]
  11. PRILOSEC [Concomitant]
  12. PROVIGIL [Concomitant]
  13. ZANTAC [Concomitant]
  14. TESTOSTERONE [Concomitant]

REACTIONS (3)
  - Diarrhoea [Unknown]
  - Hypoaesthesia [Unknown]
  - Paraesthesia [Unknown]
